FAERS Safety Report 6560669-2 (Version None)
Quarter: 2010Q1

REPORT INFORMATION
  Report Type: 
  Country: None (occurrence: None)
  Receive Date: 20100129
  Receipt Date: 20050324
  Transmission Date: 20100710
  Serious: No
  Sender: FDA-Public Use
  Company Number: US-ALLERGAN-200502446

PATIENT
  Age: 29 Year
  Sex: Female
  Weight: 72.727 kg

DRUGS (1)
  1. BOTOX COSMETIC [Suspect]
     Indication: SKIN WRINKLING
     Dosage: 30UNITS, PRN
     Route: 030
     Dates: start: 20050324

REACTIONS (2)
  - BURNING SENSATION [None]
  - FEELING HOT [None]
